FAERS Safety Report 10350271 (Version 3)
Quarter: 2014Q4

REPORT INFORMATION
  Report Type: Spontaneous
  Country: IT (occurrence: IT)
  Receive Date: 20140730
  Receipt Date: 20141120
  Transmission Date: 20150528
  Serious: Yes (Life-Threatening)
  Sender: FDA-Public Use
  Company Number: IT-PFIZER INC-2014210584

PATIENT
  Age: 73 Year
  Sex: Male

DRUGS (3)
  1. HALCION [Suspect]
     Active Substance: TRIAZOLAM
     Dosage: 5 MG, TOTAL DOSE (ONE TABLET DAILY)
     Route: 048
     Dates: start: 20140531, end: 20140531
  2. TRITTICO [Suspect]
     Active Substance: TRAZODONE HYDROCHLORIDE
     Dosage: 2250 MG, TOTAL DOSE (ONE TABLET DAILY)
     Route: 048
     Dates: start: 20140531, end: 20140531
  3. XANAX [Suspect]
     Active Substance: ALPRAZOLAM
     Dosage: 10 MG,  TOTAL DOSE (2 TABLETS DAILY)
     Route: 048
     Dates: start: 20140531, end: 20140531

REACTIONS (4)
  - Loss of consciousness [Recovered/Resolved]
  - Drug abuse [Recovered/Resolved]
  - Intentional self-injury [Recovered/Resolved]
  - Toxicity to various agents [Recovered/Resolved]

NARRATIVE: CASE EVENT DATE: 20140531
